FAERS Safety Report 8206625-X (Version None)
Quarter: 2012Q1

REPORT INFORMATION
  Report Type: 
  Country: None (occurrence: None)
  Receive Date: 20120314
  Receipt Date: 20120306
  Transmission Date: 20120608
  Serious: Yes (Other)
  Sender: FDA-Public Use
  Company Number: US-BIOGENIDEC-2010BI044273

PATIENT
  Age: 58 Year
  Sex: Female
  Weight: 88 kg

DRUGS (11)
  1. ACIDOPHILUS [Concomitant]
  2. BACLOFEN [Concomitant]
  3. CRESTOR [Concomitant]
  4. COMPAZINE [Concomitant]
  5. ZANTAC [Concomitant]
  6. ZOFRAN [Concomitant]
  7. TYSABRI [Suspect]
     Indication: MULTIPLE SCLEROSIS
     Route: 042
     Dates: start: 20080515, end: 20101130
  8. VICODIN [Concomitant]
  9. PERCOCET [Concomitant]
  10. EMLA [Concomitant]
     Route: 061
  11. OMEPRAZOLE [Concomitant]

REACTIONS (1)
  - BREAST CANCER [None]
